FAERS Safety Report 7920143-5 (Version None)
Quarter: 2011Q4

REPORT INFORMATION
  Report Type: 
  Country: None (occurrence: None)
  Receive Date: 20111117
  Receipt Date: 20111107
  Transmission Date: 20120403
  Serious: Yes (Hospitalization)
  Sender: FDA-Public Use
  Company Number: CA-JNJFOC-20111104469

PATIENT
  Sex: Female
  Weight: 57 kg

DRUGS (10)
  1. FLAGYL [Concomitant]
  2. PLAVIX [Concomitant]
  3. LASIX [Concomitant]
  4. REMICADE [Suspect]
     Indication: CROHN'S DISEASE
     Route: 042
     Dates: start: 20100602
  5. VITAMIN K TAB [Concomitant]
  6. DILTIAZEM HCL [Concomitant]
  7. AMIODARONE HCL [Concomitant]
  8. IRON [Concomitant]
  9. ADVAIR DISKUS 100/50 [Concomitant]
  10. SYNTHROID [Concomitant]

REACTIONS (8)
  - CROHN'S DISEASE [None]
  - ASTHENIA [None]
  - DYSPNOEA [None]
  - GASTROINTESTINAL HAEMORRHAGE [None]
  - DIVERTICULUM [None]
  - FLANK PAIN [None]
  - CLOSTRIDIAL INFECTION [None]
  - GROIN PAIN [None]
